FAERS Safety Report 15119996 (Version 1)
Quarter: 2018Q3

REPORT INFORMATION
  Report Type: Spontaneous
  Country: US (occurrence: US)
  Receive Date: 20180613
  Receipt Date: 20180613
  Transmission Date: 20181010
  Serious: Yes (Death)
  Sender: FDA-Public Use
  Company Number: None

PATIENT
  Sex: Male

DRUGS (8)
  1. TACROLIMUS. [Suspect]
     Active Substance: TACROLIMUS
     Indication: LUNG TRANSPLANT
     Route: 048
     Dates: start: 20160623
  2. BACTRIM 400/80 [Concomitant]
  3. PREDNISONE 5MG [Concomitant]
     Active Substance: PREDNISONE
  4. AZITHROMYCIN 250MG [Concomitant]
     Active Substance: AZITHROMYCIN ANHYDROUS
  5. HALOPERIDOL 1MG [Concomitant]
  6. HYOSYCAMINE 0.125MG [Concomitant]
  7. PAROXETINE 20MG [Concomitant]
     Active Substance: PAROXETINE
  8. LORAZEPAM 1MG [Concomitant]
     Active Substance: LORAZEPAM

REACTIONS (1)
  - Death [None]
